FAERS Safety Report 15792273 (Version 3)
Quarter: 2019Q1

REPORT INFORMATION
  Report Type: Spontaneous
  Country: FI (occurrence: FI)
  Receive Date: 20190107
  Receipt Date: 20190226
  Transmission Date: 20190417
  Serious: Yes (Other)
  Sender: FDA-Public Use
  Company Number: FI-ROCHE-2219882

PATIENT
  Age: 58 Year
  Sex: Female

DRUGS (9)
  1. BAKLOFEN [Concomitant]
     Active Substance: BACLOFEN
     Dosage: 5-10 MG 3-4 TIMES DAILY
     Route: 065
     Dates: start: 20180612
  2. CORTISONE [Suspect]
     Active Substance: CORTISONE\HYDROCORTISONE
     Indication: PRODUCT USED FOR UNKNOWN INDICATION
     Route: 065
  3. VESICARE [Concomitant]
     Active Substance: SOLIFENACIN SUCCINATE
     Route: 065
     Dates: start: 20171117
  4. OCREVUS [Suspect]
     Active Substance: OCRELIZUMAB
     Route: 041
     Dates: start: 20181207
  5. SOLU-MEDROL [Suspect]
     Active Substance: METHYLPREDNISOLONE SODIUM SUCCINATE
     Indication: PREMEDICATION
     Route: 042
     Dates: start: 20181122
  6. PANADOL FORTE [Concomitant]
     Dosage: 2-3 TIMES DAILY AS NEEDED
     Route: 065
     Dates: start: 20180612
  7. OCREVUS [Suspect]
     Active Substance: OCRELIZUMAB
     Indication: PRIMARY PROGRESSIVE MULTIPLE SCLEROSIS
     Route: 041
     Dates: start: 20181122
  8. ATARAX [Concomitant]
     Active Substance: HYDROXYZINE HYDROCHLORIDE
     Indication: PREMEDICATION
     Route: 048
     Dates: start: 20181122
  9. SIRDALUD [Concomitant]
     Active Substance: TIZANIDINE
     Route: 065
     Dates: start: 20161220

REACTIONS (3)
  - Herpes zoster [Recovered/Resolved]
  - Heart rate increased [Recovered/Resolved]
  - Fatigue [Unknown]

NARRATIVE: CASE EVENT DATE: 20181122
